FAERS Safety Report 8347348-6 (Version None)
Quarter: 2012Q2

REPORT INFORMATION
  Report Type: 
  Country: None (occurrence: None)
  Receive Date: 20120509
  Receipt Date: 20120430
  Transmission Date: 20120825
  Serious: Yes (Life-Threatening, Hospitalization)
  Sender: FDA-Public Use
  Company Number: DE-ROCHE-1046709

PATIENT
  Sex: Female
  Weight: 6.25 kg

DRUGS (1)
  1. LARIAM [Suspect]
     Indication: MALARIA
     Dosage: 1/8 DOSE FORM
     Route: 048
     Dates: start: 20120304, end: 20120304

REACTIONS (1)
  - ANAPHYLACTIC SHOCK [None]
